FAERS Safety Report 8819781 (Version 2)
Quarter: 2015Q1

REPORT INFORMATION
  Report Type: Report from Study
  Country: US (occurrence: US)
  Receive Date: 20121001
  Receipt Date: 20150129
  Transmission Date: 20150721
  Serious: Yes (Death, Hospitalization, Other)
  Sender: FDA-Public Use
  Company Number: US-ROCHE-1104332

PATIENT
  Sex: Female

DRUGS (24)
  1. HERCEPTIN [Suspect]
     Active Substance: TRASTUZUMAB
     Indication: BONE CANCER METASTATIC
  2. DECADRON [Concomitant]
     Active Substance: DEXAMETHASONE
     Route: 065
  3. ZOVIRAX [Concomitant]
     Active Substance: ACYCLOVIR
  4. LEVAQUIN [Concomitant]
     Active Substance: LEVOFLOXACIN
  5. HEPARIN [Concomitant]
     Active Substance: HEPARIN SODIUM
  6. BENADRYL [Concomitant]
     Active Substance: DIPHENHYDRAMINE HYDROCHLORIDE
     Route: 065
  7. OCUFLOX [Concomitant]
     Active Substance: OFLOXACIN
  8. HERCEPTIN [Suspect]
     Active Substance: TRASTUZUMAB
     Indication: BREAST CANCER FEMALE
     Route: 042
     Dates: start: 199909
  9. ENSURE [Concomitant]
     Active Substance: AMINO ACIDS\DEXTROSE\ELECTROLYTES NOS\SOYBEAN OIL\VITAMINS
  10. HALDOL [Concomitant]
     Active Substance: HALOPERIDOL
     Route: 048
  11. AREDIA [Concomitant]
     Active Substance: PAMIDRONATE DISODIUM
     Indication: METASTASES TO BONE
     Route: 065
  12. PREDNISONE. [Concomitant]
     Active Substance: PREDNISONE
     Route: 065
  13. TAXOL [Concomitant]
     Active Substance: PACLITAXEL
  14. PROCRIT [Concomitant]
     Active Substance: ERYTHROPOIETIN
  15. FILGRASTIM [Suspect]
     Active Substance: FILGRASTIM
     Indication: PRODUCT USED FOR UNKNOWN INDICATION
     Route: 065
  16. GRANISETRON [Suspect]
     Active Substance: GRANISETRON
     Indication: PRODUCT USED FOR UNKNOWN INDICATION
     Route: 065
  17. FEMARA [Concomitant]
     Active Substance: LETROZOLE
  18. EPOGEN [Concomitant]
     Active Substance: ERYTHROPOIETIN
     Dosage: 40000 UNIT
     Route: 065
  19. TYLENOL [Concomitant]
     Active Substance: ACETAMINOPHEN
     Route: 048
  20. CARAFATE [Concomitant]
     Active Substance: SUCRALFATE
  21. PRILOSEC [Concomitant]
     Active Substance: OMEPRAZOLE MAGNESIUM
  22. NAVELBINE [Concomitant]
     Active Substance: VINORELBINE TARTRATE
  23. DECADRON [Concomitant]
     Active Substance: DEXAMETHASONE
     Route: 065
  24. AMOXICILLIN. [Concomitant]
     Active Substance: AMOXICILLIN

REACTIONS (21)
  - Pneumonia [Unknown]
  - Confusional state [Unknown]
  - Agitation [Unknown]
  - Dysphonia [Unknown]
  - Urine output increased [Unknown]
  - Ulcer [Unknown]
  - Cachexia [Unknown]
  - Muscular weakness [Unknown]
  - Bone disorder [Unknown]
  - Paranoia [Unknown]
  - Performance status decreased [Unknown]
  - Disease progression [Unknown]
  - Peripheral swelling [Unknown]
  - Hemianopia homonymous [Unknown]
  - Death [Fatal]
  - Gastrointestinal haemorrhage [Unknown]
  - Musculoskeletal chest pain [Unknown]
  - Hyporeflexia [Unknown]
  - Oral candidiasis [Unknown]
  - Anxiety [Unknown]
  - Hypokinesia [Unknown]
